FAERS Safety Report 4757006-2 (Version None)
Quarter: 2005Q3

REPORT INFORMATION
  Report Type: 
  Country: None (occurrence: None)
  Receive Date: 20050824
  Receipt Date: 20050804
  Transmission Date: 20060218
  Serious: Yes (Hospitalization)
  Sender: FDA-Public Use
  Company Number: 2005BH001194

PATIENT
  Age: 44 Year
  Sex: Male

DRUGS (2)
  1. RECOMBINATE [Suspect]
     Indication: FACTOR VIII DEFICIENCY
     Dates: start: 20050202
  2. MULTI-VITAMINS [Concomitant]

REACTIONS (5)
  - ANTI FACTOR VIII ANTIBODY POSITIVE [None]
  - BIOPSY LIVER [None]
  - HAEMATOMA [None]
  - HAEMORRHAGE [None]
  - HERNIA REPAIR [None]
